FAERS Safety Report 18689191 (Version 1)
Quarter: 2020Q4

REPORT INFORMATION
  Report Type: Spontaneous
  Country: DE (occurrence: DE)
  Receive Date: 20201231
  Receipt Date: 20201231
  Transmission Date: 20210114
  Serious: Yes (Other)
  Sender: FDA-Public Use
  Company Number: NVSC2020DE338861

PATIENT
  Age: 37 Year
  Sex: Female
  Weight: 58 kg

DRUGS (8)
  1. PREDNISOLONE. [Suspect]
     Active Substance: PREDNISOLONE
     Indication: RHEUMATOID ARTHRITIS
     Dosage: 10 [MG/D (BIS7.5) ]/ AFTER THE FIRST 2 WEEKS INCREASE TO 10 MG/D
     Route: 048
     Dates: start: 20191207, end: 20200726
  2. IBUPROFEN. [Concomitant]
     Active Substance: IBUPROFEN
     Indication: RHEUMATOID ARTHRITIS
     Dosage: 400 MG, QD 400 [MG/D ]/ UNKNWON, IF DAILY INTAKE OR HOW OFTEN, RESPECTIVELY.
     Route: 048
  3. ENOXAPARIN [Concomitant]
     Active Substance: ENOXAPARIN
     Indication: PRODUCT USED FOR UNKNOWN INDICATION
     Dosage: 6000 IU, QD 6000 [IE/D ]
     Route: 058
     Dates: start: 20200505, end: 20200619
  4. PARACETAMOL [Concomitant]
     Active Substance: ACETAMINOPHEN
     Indication: RHEUMATOID ARTHRITIS
     Dosage: UNKNOWN HOW OFTEN IT WAS TAKEN. VARYING DOSAGES.
     Route: 048
  5. FENISTIL [Concomitant]
     Active Substance: DIMETHINDENE
     Indication: ANAPHYLACTIC SHOCK
     Dosage: 4 MG, QD 4 [MG/D]
     Route: 042
     Dates: start: 20200112, end: 20200112
  6. ARIXTRA [Concomitant]
     Active Substance: FONDAPARINUX SODIUM
     Indication: PRODUCT USED FOR UNKNOWN INDICATION
     Dosage: 5 MG, QD 5 [MG/D]
     Route: 058
     Dates: start: 20200620, end: 20200726
  7. ADRENALIN [Concomitant]
     Active Substance: EPINEPHRINE
     Indication: ANAPHYLACTIC SHOCK
     Dosage: ANAPHYLACTIC SHOCK AFTER IBUPROFEN INTAKE
     Route: 042
     Dates: start: 20200112, end: 20200112
  8. SOLU-DECORTIN [Concomitant]
     Active Substance: PREDNISOLONE SODIUM SUCCINATE
     Indication: ANAPHYLACTIC SHOCK
     Dosage: 250 MG, QD 250 [MG/D]
     Route: 042
     Dates: start: 20200112, end: 20200112

REACTIONS (3)
  - Cholestasis of pregnancy [Recovered/Resolved]
  - Gestational diabetes [Recovered/Resolved]
  - Exposure during pregnancy [Unknown]
